FAERS Safety Report 7708523-4 (Version None)
Quarter: 2011Q3

REPORT INFORMATION
  Report Type: 
  Country: None (occurrence: None)
  Receive Date: 20110819
  Receipt Date: 20110809
  Transmission Date: 20111222
  Serious: Yes (Death, Life-Threatening, Hospitalization)
  Sender: FDA-Public Use
  Company Number: 2011ST000173

PATIENT
  Age: 23 Year
  Sex: Male
  Weight: 139.2 kg

DRUGS (65)
  1. AMLODIPINE [Concomitant]
  2. ASCORBIC ACID [Concomitant]
  3. DIPHENHYDRAMINE HCL [Concomitant]
  4. FENTANYL [Concomitant]
  5. HYDRALAZINE HCL [Concomitant]
  6. HYDROXYPROPYL METHYLCELLULOSE [Concomitant]
  7. OMEPRAZOLE [Concomitant]
  8. ONDANSETRON [Concomitant]
  9. RASBURICASE [Concomitant]
  10. SELENIUM TRACE METAL ADDITIVE [Concomitant]
  11. PREDNISONE [Suspect]
     Indication: ACUTE LYMPHOCYTIC LEUKAEMIA
     Dosage: 70 MG; BID; PO
     Route: 048
     Dates: start: 20110525, end: 20110620
  12. ACETAMINOPHEN [Concomitant]
  13. IMMUNE GLOBULIN NOS [Concomitant]
  14. PROMETHAZINE [Concomitant]
  15. COCAINE [Concomitant]
  16. ENOXAPARIN [Concomitant]
  17. INSULIN [Concomitant]
  18. ATIVAN [Concomitant]
  19. METOCLOPRAMIDE [Concomitant]
  20. SEVELAMER [Concomitant]
  21. ZOLPIDEM [Concomitant]
  22. CYTARABINE [Suspect]
     Indication: ACUTE LYMPHOCYTIC LEUKAEMIA
     Dosage: X1; INTH
     Route: 037
     Dates: start: 20110525, end: 20110525
  23. METHOTREXATE [Suspect]
     Indication: ACUTE LYMPHOCYTIC LEUKAEMIA
     Dosage: INTH
     Route: 037
     Dates: start: 20110602, end: 20110616
  24. ACYCLOVIR [Concomitant]
  25. CALCIUM CARBONATE W/VITAMIN D /00944201/ [Concomitant]
  26. CHOLECALCIFEROL [Concomitant]
  27. DEXTROSE [Concomitant]
  28. DOBUTAMINE HCL [Concomitant]
  29. KETAMINE HCL [Concomitant]
  30. LEVALBUTEROL HCL [Concomitant]
  31. MELATONIN [Concomitant]
  32. METHYLPREDNISOLON NATRIUM SUCCINAAT MAYNE [Concomitant]
  33. MICAFUNGIN [Concomitant]
  34. SIMETHICONE [Concomitant]
  35. TPN /00897001/ [Concomitant]
  36. ONCASPAR [Suspect]
     Indication: ACUTE LYMPHOCYTIC LEUKAEMIA
     Dosage: 60000 IU;X1;IM
     Route: 030
     Dates: start: 20110531, end: 20110531
  37. FUNGIZONE [Concomitant]
  38. CALCIUM GLUCONATE [Concomitant]
  39. CHLORHEXIDINE GLUCONATE [Concomitant]
  40. CHROMIUM CHLORIDE [Concomitant]
  41. ELECTROLYTE SOLUTIONS [Concomitant]
  42. METRONIDAZOL /00012501/ [Concomitant]
  43. VIT E [Concomitant]
  44. ACETYLCYSTEINE [Concomitant]
  45. FAT EMULSIONS [Concomitant]
  46. FUROSEMIDE [Concomitant]
  47. HYDROCORTISONE [Concomitant]
  48. LANOLIN/MIN OIL/PET OPHT [Concomitant]
  49. ALBUMIN (HUMAN) [Concomitant]
  50. ALLOPURINOL [Concomitant]
  51. FILGRASTIM [Concomitant]
  52. GLYCERIN/HEMAME LEAF PADS [Concomitant]
  53. HYDROMORPHONE HCL [Concomitant]
  54. MAGNESIUM SULFATE [Concomitant]
  55. PANTOPRAZOLE [Concomitant]
  56. POTASSIUM [Concomitant]
  57. DOXORUBICIN HCL [Suspect]
     Indication: ACUTE LYMPHOCYTIC LEUKAEMIA
     Dosage: 43.75 MG/M**2; QW; IV
     Route: 040
     Dates: start: 20110526, end: 20110616
  58. VINCRISTINE [Suspect]
     Indication: ACUTE LYMPHOCYTIC LEUKAEMIA
     Dosage: QW; IV
     Route: 042
     Dates: start: 20110526, end: 20110616
  59. CLONAZEPAM [Concomitant]
  60. ATROVENT [Concomitant]
  61. MULTI-VITAMINS [Concomitant]
  62. OXYCODONE HCL [Concomitant]
  63. SENNA-S /01035001/ [Concomitant]
  64. URSODIOL [Concomitant]
  65. ZINC SULFATE [Concomitant]

REACTIONS (17)
  - PANCREATITIS [None]
  - PANCYTOPENIA [None]
  - DIALYSIS [None]
  - HEPATORENAL SYNDROME [None]
  - SEPTIC SHOCK [None]
  - COAGULOPATHY [None]
  - ACUTE PRERENAL FAILURE [None]
  - COMPARTMENT SYNDROME [None]
  - ENTEROBACTER TEST POSITIVE [None]
  - HYPERBILIRUBINAEMIA [None]
  - INTESTINAL ISCHAEMIA [None]
  - MULTI-ORGAN FAILURE [None]
  - CIRCULATORY COLLAPSE [None]
  - SUPRAVENTRICULAR TACHYCARDIA [None]
  - VENTRICULAR TACHYCARDIA [None]
  - CARDIAC ARREST [None]
  - HEPATIC FAILURE [None]
